FAERS Safety Report 14778179 (Version 2)
Quarter: 2018Q2

REPORT INFORMATION
  Report Type: Report from Study
  Country: None (occurrence: CH)
  Receive Date: 20180419
  Receipt Date: 20180424
  Transmission Date: 20180711
  Serious: Yes (Hospitalization, Other)
  Sender: FDA-Public Use
  Company Number: CH-ABBVIE-18K-151-2327201-00

PATIENT
  Age: 71 Year
  Sex: Female

DRUGS (6)
  1. DUODOPA [Suspect]
     Active Substance: CARBIDOPA\LEVODOPA
     Indication: PARKINSON^S DISEASE
     Dosage: MORNING DOSE6ML?CONTINUOUS DOSE DAY2.3ML/H?CONTINUOUS DOSE NIGHT1ML/H?EXTRA DOSE1ML
     Route: 050
     Dates: start: 20100512, end: 20170423
  2. DUODOPA [Suspect]
     Active Substance: CARBIDOPA\LEVODOPA
     Dosage: MORNING DOSE3ML?CONTINUOUS DOSE DAY1.9ML/H?CONTINUOUS DOSE NIGHT1.5ML/H?EXTRA DOSE0ML
     Route: 050
     Dates: start: 20180417, end: 20180417
  3. DUODOPA [Suspect]
     Active Substance: CARBIDOPA\LEVODOPA
     Dosage: MORNING DOSE3ML?CONTINUOUS DOSE DAY1.9ML/H?CONTINUOUS DOSE NIGHT1.5ML/H?EXTRA DOSE0ML
     Route: 050
     Dates: start: 20180327, end: 20180416
  4. DUODOPA [Suspect]
     Active Substance: CARBIDOPA\LEVODOPA
     Dosage: MORNING DOSE3ML?CONTINUOUS DOSE DAY1.5ML/H?CONTINUOUS DOSE NIGHT1.5ML/H?EXTRA DOSE0ML
     Route: 050
     Dates: start: 20180416, end: 20180416
  5. DUODOPA [Suspect]
     Active Substance: CARBIDOPA\LEVODOPA
     Dosage: MORNING DOSE6ML?CONTINUOUS DOSE DAY2.1ML/H?CONTINUOUS DOSE NIGHT1ML/H?EXTRA DOSE1ML
     Route: 050
     Dates: start: 20170423, end: 20180327
  6. DUODOPA [Suspect]
     Active Substance: CARBIDOPA\LEVODOPA
     Dosage: MORNING DOSE3ML?CONTINUOUS DOSE DAY2ML/H?CONTINUOUS DOSE NIGHT2ML/H?EXTRA DOSE0ML
     Route: 050
     Dates: start: 20180418

REACTIONS (17)
  - Device dislocation [Unknown]
  - Hyperhidrosis [Unknown]
  - Dysphonia [Unknown]
  - Feeling hot [Unknown]
  - Wrong technique in device usage process [Recovered/Resolved]
  - Akinesia [Unknown]
  - C-reactive protein increased [Unknown]
  - Somnolence [Unknown]
  - Neck pain [Unknown]
  - Chills [Unknown]
  - Drug ineffective [Unknown]
  - Cold sweat [Unknown]
  - Malaise [Unknown]
  - Pain [Unknown]
  - Dyskinesia [Unknown]
  - Device defective [Recovered/Resolved]
  - Tremor [Unknown]

NARRATIVE: CASE EVENT DATE: 20180416
